FAERS Safety Report 14931249 (Version 1)
Quarter: 2018Q2

REPORT INFORMATION
  Report Type: Spontaneous
  Country: FR (occurrence: FR)
  Receive Date: 20180524
  Receipt Date: 20180524
  Transmission Date: 20180711
  Serious: Yes (Other)
  Sender: FDA-Public Use
  Company Number: FR-MERCK KGAA-2048364

PATIENT
  Age: 70 Year
  Sex: Female

DRUGS (1)
  1. NOVOTHYROX [Suspect]
     Active Substance: LEVOTHYROXINE SODIUM
     Indication: PRODUCT USED FOR UNKNOWN INDICATION

REACTIONS (23)
  - High density lipoprotein increased [None]
  - Hyperhidrosis [None]
  - Throat irritation [None]
  - White blood cell count decreased [None]
  - Arthralgia [None]
  - Alopecia [None]
  - General physical health deterioration [None]
  - Serum ferritin increased [Not Recovered/Not Resolved]
  - Dizziness [None]
  - Aspartate aminotransferase increased [Recovered/Resolved]
  - Pain [None]
  - Lymphocyte count decreased [None]
  - Psychiatric symptom [None]
  - Immunoglobulins decreased [None]
  - Muscle spasms [None]
  - Low density lipoprotein increased [None]
  - Somnolence [None]
  - Insomnia [None]
  - Fatigue [None]
  - Migraine [None]
  - Blood cholesterol increased [None]
  - Mean cell haemoglobin decreased [None]
  - Decreased activity [None]

NARRATIVE: CASE EVENT DATE: 20170111
